FAERS Safety Report 13466990 (Version 3)
Quarter: 2017Q2

REPORT INFORMATION
  Report Type: Spontaneous
  Country: TW (occurrence: TW)
  Receive Date: 20170421
  Receipt Date: 20170519
  Transmission Date: 20170830
  Serious: Yes (Hospitalization)
  Sender: FDA-Public Use
  Company Number: TW-ABBVIE-17P-153-1945780-00

PATIENT
  Age: 80 Year
  Sex: Male
  Weight: 67 kg

DRUGS (12)
  1. DICLOFENAC [Suspect]
     Active Substance: DICLOFENAC
     Indication: TREMOR
     Dosage: GIVEN STAT
     Route: 030
     Dates: start: 20170414, end: 20170414
  2. FUCOLE PARAN [Concomitant]
     Indication: VIRAL UPPER RESPIRATORY TRACT INFECTION
     Dates: start: 20170413, end: 20170414
  3. EXVIERA [Suspect]
     Active Substance: DASABUVIR
     Indication: HEPATITIS C
     Route: 048
     Dates: start: 20170210, end: 20170421
  4. SUPERGEL [Concomitant]
     Indication: PRODUCT USED FOR UNKNOWN INDICATION
     Dates: start: 20170413
  5. VIEKIRAX [Suspect]
     Active Substance: OMBITASVIR\PARITAPREVIR\RITONAVIR
     Indication: HEPATITIS C
     Route: 048
     Dates: start: 20170210, end: 20170421
  6. EXVIERA [Suspect]
     Active Substance: DASABUVIR
     Route: 048
     Dates: start: 20170424
  7. NOSPAN [Concomitant]
     Indication: VIRAL UPPER RESPIRATORY TRACT INFECTION
     Dates: start: 20170413, end: 20170414
  8. TRIPROLIDINE [Concomitant]
     Active Substance: TRIPROLIDINE
     Indication: VIRAL UPPER RESPIRATORY TRACT INFECTION
     Dates: end: 20170414
  9. DECAN [Concomitant]
     Active Substance: DEXAMETHASONE
     Indication: VIRAL UPPER RESPIRATORY TRACT INFECTION
     Route: 048
     Dates: start: 20170413, end: 20170414
  10. VIEKIRAX [Suspect]
     Active Substance: OMBITASVIR\PARITAPREVIR\RITONAVIR
     Route: 048
     Dates: start: 20170424
  11. PEACE [Concomitant]
     Indication: VIRAL UPPER RESPIRATORY TRACT INFECTION
     Dates: start: 20170413, end: 20170414
  12. DIAZEPAM. [Suspect]
     Active Substance: DIAZEPAM
     Indication: TREMOR
     Dosage: 1 INJECTION GIVEN STAT
     Route: 030
     Dates: start: 20170414, end: 20170414

REACTIONS (3)
  - Extrapyramidal disorder [Recovered/Resolved]
  - Viral upper respiratory tract infection [Recovered/Resolved]
  - Seizure [Recovered/Resolved]

NARRATIVE: CASE EVENT DATE: 20170413
